FAERS Safety Report 5872829-4 (Version None)
Quarter: 2008Q3

REPORT INFORMATION
  Report Type: 
  Country: None (occurrence: None)
  Receive Date: 20080905
  Receipt Date: 20080826
  Transmission Date: 20090109
  Serious: Yes (Hospitalization, Other)
  Sender: FDA-Public Use
  Company Number: FR-PFIZER INC-2008037706

PATIENT
  Sex: Male
  Weight: 56 kg

DRUGS (8)
  1. LYRICA [Suspect]
     Indication: LUMBAR SPINAL STENOSIS
     Route: 048
     Dates: start: 20071005, end: 20080304
  2. LYRICA [Suspect]
     Indication: NEURALGIA
  3. INSULIN [Concomitant]
     Indication: DIABETES MELLITUS
     Route: 058
  4. ASPEGIC 325 [Concomitant]
  5. TAMSULOSIN HCL [Concomitant]
     Route: 048
  6. TRAMADOL HCL [Concomitant]
     Route: 048
  7. INSULIN HUMAN [Concomitant]
     Route: 058
  8. INSULIN ASPART [Concomitant]
     Route: 058

REACTIONS (9)
  - ALANINE AMINOTRANSFERASE INCREASED [None]
  - ASPARTATE AMINOTRANSFERASE INCREASED [None]
  - EOSINOPHILIA [None]
  - FALL [None]
  - GAMMA-GLUTAMYLTRANSFERASE INCREASED [None]
  - GENERAL PHYSICAL HEALTH DETERIORATION [None]
  - HEPATIC FUNCTION ABNORMAL [None]
  - MYELOPROLIFERATIVE DISORDER [None]
  - SPINAL FRACTURE [None]
